FAERS Safety Report 8270620-5 (Version None)
Quarter: 2012Q2

REPORT INFORMATION
  Report Type: 
  Country: None (occurrence: None)
  Receive Date: 20120410
  Receipt Date: 20120402
  Transmission Date: 20120825
  Serious: Yes (Disabling, Other)
  Sender: FDA-Public Use
  Company Number: US-BAYER-2011-121127

PATIENT
  Age: 79 Year
  Sex: Male

DRUGS (1)
  1. NEXAVAR [Suspect]
     Indication: HEPATIC NEOPLASM MALIGNANT
     Dosage: 200 MG, BID
     Route: 048
     Dates: start: 20111201, end: 20111214

REACTIONS (7)
  - HYPERKERATOSIS PALMARIS AND PLANTARIS [None]
  - ABASIA [None]
  - APHAGIA [None]
  - BLISTER [None]
  - BLOOD PRESSURE INCREASED [None]
  - FATIGUE [None]
  - PROCTALGIA [None]
